FAERS Safety Report 24464713 (Version 1)
Quarter: 2024Q4

REPORT INFORMATION
  Report Type: Report from Study
  Country: US (occurrence: US)
  Receive Date: 20241018
  Receipt Date: 20241018
  Transmission Date: 20250115
  Serious: No
  Sender: ROCHE
  Company Number: US-ROCHE-3496251

PATIENT
  Age: 76 Year
  Sex: Female

DRUGS (15)
  1. XOLAIR [Suspect]
     Active Substance: OMALIZUMAB
     Indication: Urticaria
     Dosage: LAST DATE OF INJECTION: 18/JAN/2024, ANTICIPATED DATE TREATMENT: 18/FEB/2024
     Route: 058
     Dates: start: 20240118
  2. XOLAIR [Suspect]
     Active Substance: OMALIZUMAB
  3. KENALOG [Concomitant]
     Active Substance: TRIAMCINOLONE ACETONIDE
  4. MYCOSTATIN [Concomitant]
     Active Substance: NYSTATIN
  5. MEDROL [Concomitant]
     Active Substance: METHYLPREDNISOLONE
  6. SINGULAIR [Concomitant]
     Active Substance: MONTELUKAST SODIUM
  7. ATARAX [Concomitant]
     Active Substance: HYDROXYZINE HYDROCHLORIDE
  8. BENADRYL [Concomitant]
     Active Substance: DIPHENHYDRAMINE HYDROCHLORIDE
  9. ZYRTEC [Concomitant]
     Active Substance: CETIRIZINE HYDROCHLORIDE
  10. MAXITROL [Concomitant]
     Active Substance: DEXAMETHASONE\NEOMYCIN SULFATE\POLYMYXIN B SULFATE
  11. NEURONTIN [Concomitant]
     Active Substance: GABAPENTIN
  12. LASIX [Concomitant]
     Active Substance: FUROSEMIDE
  13. ZOFRAN [Concomitant]
     Active Substance: ONDANSETRON HYDROCHLORIDE
  14. NYSTOP [Concomitant]
     Active Substance: NYSTATIN
  15. PROLIA [Concomitant]
     Active Substance: DENOSUMAB

REACTIONS (7)
  - Blood creatinine increased [Unknown]
  - Glomerular filtration rate decreased [Unknown]
  - Blood cholesterol increased [Unknown]
  - Low density lipoprotein increased [Unknown]
  - Blood immunoglobulin E increased [Unknown]
  - Urticaria [Unknown]
  - Dry skin [Unknown]
